FAERS Safety Report 17202492 (Version 1)
Quarter: 2019Q4

REPORT INFORMATION
  Report Type: Spontaneous
  Country: US (occurrence: US)
  Receive Date: 20191204
  Receipt Date: 20191204
  Transmission Date: 20200122
  Serious: No
  Sender: FDA-Public Use
  Company Number: None

PATIENT
  Age: 21 Year
  Sex: Female
  Weight: 54.43 kg

DRUGS (1)
  1. ARIPIPRAZOLE 5MG [Suspect]
     Active Substance: ARIPIPRAZOLE
     Indication: AUTISM SPECTRUM DISORDER
     Dosage: ?          OTHER FREQUENCY:QHS ;?
     Route: 048

REACTIONS (3)
  - Condition aggravated [None]
  - Product substitution issue [None]
  - Irritability [None]

NARRATIVE: CASE EVENT DATE: 20180115
